FAERS Safety Report 4603608-3 (Version None)
Quarter: 2005Q1

REPORT INFORMATION
  Report Type: 
  Country: None (occurrence: None)
  Receive Date: 20050310
  Receipt Date: 20050223
  Transmission Date: 20050727
  Serious: Yes (Hospitalization)
  Sender: FDA-Public Use
  Company Number: GB-BOEHRINGER INGELHEIM PHARMMACEUTICALS, INC.-2005-UK-00310UK

PATIENT
  Sex: Female

DRUGS (5)
  1. ATROVENT [Suspect]
  2. VENTOLIN [Concomitant]
  3. BECLOMETHASONE DIPROPIONATE [Concomitant]
  4. BRICONYLE [Concomitant]
  5. OXID [Concomitant]

REACTIONS (1)
  - EMPHYSEMA [None]
